FAERS Safety Report 23886916 (Version 4)
Quarter: 2025Q3

REPORT INFORMATION
  Report Type: Report from Study
  Country: US (occurrence: US)
  Receive Date: 20240523
  Receipt Date: 20250925
  Transmission Date: 20251020
  Serious: Yes (Other)
  Sender: ABBVIE
  Company Number: US-ABBVIE-5713866

PATIENT
  Age: 60 Year
  Sex: Female

DRUGS (3)
  1. SKYRIZI [Suspect]
     Active Substance: RISANKIZUMAB-RZAA
     Indication: Psoriatic arthropathy
     Dosage: SOLUTION FOR INJECTION IN PRE-FILLED PEN?FORM STRENGTH: 150 MG
     Route: 058
     Dates: start: 2019
  2. SKYRIZI [Suspect]
     Active Substance: RISANKIZUMAB-RZAA
     Route: 058
     Dates: start: 20200812
  3. SKYRIZI [Suspect]
     Active Substance: RISANKIZUMAB-RZAA
     Route: 058
     Dates: start: 20210226

REACTIONS (9)
  - Meniscus injury [Recovering/Resolving]
  - Nail disorder [Recovered/Resolved]
  - Viral infection [Unknown]
  - Nail pitting [Recovered/Resolved]
  - Limb injury [Recovered/Resolved]
  - Pain [Unknown]
  - Wrist fracture [Recovered/Resolved]
  - Fall [Recovered/Resolved]
  - Haematoma [Unknown]

NARRATIVE: CASE EVENT DATE: 20230601
